FAERS Safety Report 18798797 (Version 1)
Quarter: 2021Q1

REPORT INFORMATION
  Report Type: Spontaneous
  Country: US (occurrence: US)
  Receive Date: 20210127
  Receipt Date: 20210127
  Transmission Date: 20210419
  Serious: Yes (Hospitalization)
  Sender: FDA-Public Use
  Company Number: None

PATIENT
  Age: 64 Year
  Sex: Female

DRUGS (1)
  1. RYDAPT [Suspect]
     Active Substance: MIDOSTAURIN
     Indication: ACUTE MYELOID LEUKAEMIA
     Dosage: 2 CAPS BID PO ? D 8?21 Q28D
     Route: 048
     Dates: start: 20201120

REACTIONS (2)
  - Dizziness [None]
  - Bone pain [None]

NARRATIVE: CASE EVENT DATE: 202011
